FAERS Safety Report 5846417-X (Version None)
Quarter: 2008Q3

REPORT INFORMATION
  Report Type: 
  Country: None (occurrence: None)
  Receive Date: 20080815
  Receipt Date: 20080806
  Transmission Date: 20090109
  Serious: Yes (Other)
  Sender: FDA-Public Use
  Company Number: GB-JNJFOC-20080801446

PATIENT
  Age: 53 Year
  Sex: Male

DRUGS (6)
  1. REMICADE [Suspect]
     Indication: COLITIS ULCERATIVE
     Route: 042
  2. REMICADE [Suspect]
     Indication: CROHN'S DISEASE
     Route: 042
  3. PARACETAMOL [Concomitant]
  4. AZATHIOPRINE [Concomitant]
  5. LANSOPRAZOLE [Concomitant]
  6. MESALAMINE [Concomitant]

REACTIONS (1)
  - DEMYELINATION [None]
